APPROVED DRUG PRODUCT: KETOROLAC TROMETHAMINE
Active Ingredient: KETOROLAC TROMETHAMINE
Strength: 0.5%
Dosage Form/Route: SOLUTION/DROPS;OPHTHALMIC
Application: A205190 | Product #001
Applicant: EUGIA PHARMA SPECIALITIES LTD
Approved: Dec 3, 2020 | RLD: No | RS: No | Type: DISCN